FAERS Safety Report 24385714 (Version 1)
Quarter: 2024Q4

REPORT INFORMATION
  Report Type: Spontaneous
  Country: US (occurrence: US)
  Receive Date: 20241001
  Receipt Date: 20241001
  Transmission Date: 20250115
  Serious: Yes (Hospitalization)
  Sender: JOHNSON AND JOHNSON
  Company Number: US-JNJFOC-20240961277

PATIENT
  Sex: Female

DRUGS (3)
  1. XARELTO [Suspect]
     Active Substance: RIVAROXABAN
     Indication: Atrial fibrillation
     Dosage: GTIN NUMBER : 00350458579307?SERIAL NUMBER : 100059563947
     Route: 048
  2. XARELTO [Suspect]
     Active Substance: RIVAROXABAN
     Indication: Cerebrovascular accident prophylaxis
  3. PLAVIX [Concomitant]
     Active Substance: CLOPIDOGREL BISULFATE

REACTIONS (6)
  - Vaginal haemorrhage [Not Recovered/Not Resolved]
  - Haemoglobin decreased [Unknown]
  - Hypotension [Unknown]
  - Blood urine present [Not Recovered/Not Resolved]
  - Dysuria [Unknown]
  - Polyp [Unknown]
